APPROVED DRUG PRODUCT: ASBRON
Active Ingredient: THEOPHYLLINE SODIUM GLYCINATE
Strength: EQ 150MG BASE
Dosage Form/Route: TABLET;ORAL
Application: A085148 | Product #001
Applicant: NOVARTIS CONSUMER HEALTH INC
Approved: Approved Prior to Jan 1, 1982 | RLD: No | RS: No | Type: DISCN